FAERS Safety Report 9648646 (Version 1)
Quarter: 2013Q4

REPORT INFORMATION
  Report Type: Spontaneous
  Country: US (occurrence: None)
  Receive Date: 20131025
  Receipt Date: 20131025
  Transmission Date: 20140711
  Serious: Yes (Life-Threatening, Hospitalization, Disabling)
  Sender: FDA-Public Use
  Company Number: None

PATIENT
  Age: 42 Year
  Sex: Female
  Weight: 77.11 kg

DRUGS (3)
  1. NUVARING [Suspect]
     Indication: MENORRHAGIA
     Dosage: 0.120 MG/1.015 MG PER DAY  1 NUVARING
     Route: 067
     Dates: start: 20130729, end: 20130912
  2. ENOXAPARIN [Concomitant]
  3. RIZATRIPTAN [Concomitant]

REACTIONS (2)
  - Pulmonary embolism [None]
  - Cardiac disorder [None]
